FAERS Safety Report 17003753 (Version 1)
Quarter: 2019Q4

REPORT INFORMATION
  Report Type: Spontaneous
  Country: FR (occurrence: FR)
  Receive Date: 20191107
  Receipt Date: 20191107
  Transmission Date: 20200122
  Serious: Yes (Hospitalization)
  Sender: FDA-Public Use
  Company Number: FR-TEVA-2019-FR-1132483

PATIENT
  Age: 68 Year
  Sex: Female

DRUGS (22)
  1. JANUVIA [Concomitant]
     Active Substance: SITAGLIPTIN PHOSPHATE
  2. ANORO ELLIPTA [Concomitant]
     Active Substance: UMECLIDINIUM BROMIDE\VILANTEROL TRIFENATATE
  3. DIPIPERON [Concomitant]
     Active Substance: PIPAMPERONE
  4. TOUJEO [Concomitant]
     Active Substance: INSULIN GLARGINE
  5. BRONCHOKOD [Concomitant]
     Active Substance: CARBOCYSTEINE
  6. ESOMEPRAZOLE. [Concomitant]
     Active Substance: ESOMEPRAZOLE MAGNESIUM
  7. KARDEGIC [Concomitant]
     Active Substance: ASPIRIN DL-LYSINE
  8. DILTIAZEM (CHLORHYDRATE DE) [Suspect]
     Active Substance: DILTIAZEM HYDROCHLORIDE
     Indication: HYPERTENSION
     Dosage: 300  MG
     Route: 048
     Dates: end: 20190912
  9. SPIRONOLACTONE. [Suspect]
     Active Substance: SPIRONOLACTONE
     Indication: HYPERTENSION
     Dosage: NOT KNOWN
     Route: 048
     Dates: end: 20190912
  10. DIFFU K, GELULE [Suspect]
     Active Substance: POTASSIUM CHLORIDE
     Indication: PRODUCT USED FOR UNKNOWN INDICATION
     Dosage: 1800 MG
     Route: 048
     Dates: end: 20190912
  11. APROVEL 75 MG, COMPRIME [Suspect]
     Active Substance: IRBESARTAN
     Indication: HYPERTENSION
     Dosage: 150 MG
     Route: 048
     Dates: end: 20190912
  12. MOXYDAR [Concomitant]
     Active Substance: ALUMINUM HYDROXIDE\ALUMINUM PHOSPHATE\GUAR GUM\MAGNESIUM HYDROXIDE
  13. PRAZEPAM [Concomitant]
     Active Substance: PRAZEPAM
  14. VOGALENE [Concomitant]
     Active Substance: METOPIMAZINE
  15. DICLOFENAC [Suspect]
     Active Substance: DICLOFENAC
     Indication: PRODUCT USED FOR UNKNOWN INDICATION
     Dosage: UNKNOWN
     Route: 065
  16. FUROSEMIDE. [Concomitant]
     Active Substance: FUROSEMIDE
  17. VITAMINE B12 [Concomitant]
     Active Substance: CYANOCOBALAMIN
  18. TRINIPATCH 5 MG/24 HEURES, DISPOSITIF TRANSDERMIQUE (22,4 MG / 7 CM?) [Concomitant]
  19. DOLIPRANE [Concomitant]
     Active Substance: ACETAMINOPHEN
  20. METFORMINE [Concomitant]
     Active Substance: METFORMIN HYDROCHLORIDE
  21. DEPAKOTE [Concomitant]
     Active Substance: DIVALPROEX SODIUM
  22. ALVESCO [Concomitant]
     Active Substance: CICLESONIDE

REACTIONS (4)
  - Hyperkalaemia [Recovered/Resolved]
  - Malaise [Recovered/Resolved]
  - Gastrointestinal disorder [Recovered/Resolved]
  - Sinus bradycardia [Unknown]

NARRATIVE: CASE EVENT DATE: 20190912
